FAERS Safety Report 8196764-4 (Version None)
Quarter: 2012Q1

REPORT INFORMATION
  Report Type: 
  Country: None (occurrence: None)
  Receive Date: 20120309
  Receipt Date: 20120229
  Transmission Date: 20120608
  Serious: Yes (Hospitalization)
  Sender: FDA-Public Use
  Company Number: PHHO2011JP16824

PATIENT
  Sex: Female
  Weight: 56 kg

DRUGS (31)
  1. ENALAPRIL MALEATE [Suspect]
     Indication: CARDIAC FAILURE
     Dosage: 10 MG, BID
     Route: 048
     Dates: start: 20101215
  2. ADALAT CC [Concomitant]
     Indication: HYPERTENSION
     Dosage: 60 MG, UNK
     Route: 048
     Dates: start: 20110427, end: 20111002
  3. SIGMART [Concomitant]
     Indication: CARDIAC FAILURE CHRONIC
     Dosage: 15 MG, UNK
     Route: 048
  4. METFORMIN HCL [Concomitant]
     Indication: DIABETES MELLITUS
     Dosage: 1000 MG, UNK
     Route: 048
     Dates: start: 20111201, end: 20120207
  5. ASPIRIN [Concomitant]
     Indication: MYOCARDIAL ISCHAEMIA
     Dosage: 100 MG, UNK
     Route: 048
  6. LASIX [Concomitant]
     Dosage: 40 MG, UNK
     Route: 048
  7. AMIODARONE HYDROCHLORIDE [Concomitant]
     Indication: CARDIAC FAILURE CHRONIC
     Dosage: 400 MG, UNK
     Route: 048
     Dates: start: 20120122
  8. NOVOLIN R [Concomitant]
     Indication: DIABETES MELLITUS
     Dosage: UNK
     Dates: start: 20120128
  9. AMARYL [Concomitant]
     Indication: DIABETES MELLITUS
     Dosage: 2 MG, UNK
     Route: 048
     Dates: start: 20110914
  10. GLUCOBAY [Concomitant]
     Indication: DIABETES MELLITUS
     Dosage: UNK
     Dates: start: 20110427, end: 20111002
  11. ALISKIREN [Suspect]
     Dosage: 1 DF, DAILY
     Route: 048
     Dates: start: 20110119
  12. CRESTOR [Concomitant]
     Indication: LIPID METABOLISM DISORDER
     Dosage: 5 MG, UNK
     Route: 048
     Dates: start: 20110427
  13. TRICHLORMETHIAZIDE [Concomitant]
     Indication: CARDIAC FAILURE CHRONIC
     Dosage: 1 MG, UNK
     Route: 048
     Dates: start: 20111121, end: 20120207
  14. ALISKIREN [Suspect]
     Indication: CARDIAC FAILURE
     Dosage: UNK
     Route: 048
     Dates: start: 20110202
  15. ALISKIREN [Suspect]
     Dosage: 150 MG, DAILY
     Route: 048
     Dates: start: 20110202, end: 20111001
  16. ZETIA [Concomitant]
     Indication: LIPID METABOLISM DISORDER
     Dosage: 10 MG, UNK
     Route: 048
  17. AMARYL [Concomitant]
     Dosage: 4 MG, UNK
     Route: 048
  18. AMIODARONE HYDROCHLORIDE [Concomitant]
     Dosage: 200 MG, UNK
     Route: 048
  19. HUMULIN R [Concomitant]
     Indication: DIABETES MELLITUS
     Dosage: 15 IU, UNK
     Route: 058
     Dates: start: 20120119, end: 20120123
  20. ENALAPRIL MALEATE [Concomitant]
     Indication: CARDIAC FAILURE CHRONIC
     Dosage: 5 MG, UNK
     Route: 048
     Dates: start: 20111013
  21. JANUVIA [Concomitant]
     Indication: DIABETES MELLITUS
     Dosage: 50 MG, UNK
     Route: 048
     Dates: end: 20111002
  22. LASIX [Concomitant]
     Dosage: 20 MG, UNK
     Route: 048
  23. CARVEDILOL [Concomitant]
     Indication: CARDIAC FAILURE CHRONIC
     Dosage: 20 MG, UNK
     Route: 048
     Dates: start: 20110720
  24. ALDACTONE [Concomitant]
     Indication: CARDIAC FAILURE CHRONIC
     Dosage: 12.5 MG, UNK
     Route: 048
     Dates: start: 20111201
  25. PLAVIX [Concomitant]
     Indication: MYOCARDIAL ISCHAEMIA
     Dosage: 75 MG, UNK
     Route: 048
     Dates: start: 20111013
  26. ENALAPRIL MALEATE [Suspect]
     Dosage: 20 MG, BID
     Route: 048
     Dates: start: 20110105
  27. LASIX [Concomitant]
     Indication: CARDIAC FAILURE CHRONIC
     Dosage: 20 MG, UNK
     Route: 048
     Dates: start: 20110525
  28. LANTUS [Concomitant]
     Indication: DIABETES MELLITUS
     Dosage: UNK
     Dates: start: 20120202
  29. ALLOPURINOL [Concomitant]
     Indication: HYPERURICAEMIA
     Dosage: 100 MG, UNK
     Route: 048
  30. EPADEL [Concomitant]
     Indication: LIPID METABOLISM DISORDER
     Dosage: 1800 MG, UNK
     Route: 048
     Dates: start: 20110525
  31. RABEPRAZOLE SODIUM [Concomitant]
     Indication: GASTROOESOPHAGEAL REFLUX DISEASE
     Dosage: 10 MG, UNK
     Route: 048
     Dates: start: 20120124

REACTIONS (12)
  - SYNCOPE [None]
  - MYOCARDIAL ISCHAEMIA [None]
  - VENTRICULAR EXTRASYSTOLES [None]
  - BACK PAIN [None]
  - RENAL FAILURE [None]
  - RENAL CELL CARCINOMA [None]
  - CARDIAC FAILURE ACUTE [None]
  - CARDIAC FAILURE [None]
  - ANAEMIA HAEMOLYTIC AUTOIMMUNE [None]
  - URINARY INCONTINENCE [None]
  - VENTRICULAR TACHYCARDIA [None]
  - ARTERIOSCLEROSIS CORONARY ARTERY [None]
